FAERS Safety Report 4726754-2 (Version None)
Quarter: 2005Q3

REPORT INFORMATION
  Report Type: 
  Country: None (occurrence: None)
  Receive Date: 20050725
  Receipt Date: 20050420
  Transmission Date: 20060218
  Serious: No
  Sender: FDA-Public Use
  Company Number: USA050496135

PATIENT
  Age: 32 Year
  Sex: Male
  Weight: 70 kg

DRUGS (7)
  1. STRATTERA [Suspect]
     Indication: ATTENTION DEFICIT/HYPERACTIVITY DISORDER
     Dosage: 40 MG
     Dates: start: 20050419
  2. PROTONIX [Concomitant]
  3. ZYRTEC [Concomitant]
  4. CREATININE [Concomitant]
  5. MULTI-VITAMIN [Concomitant]
  6. GLUTAMINE [Concomitant]
  7. ARGANINE [Concomitant]

REACTIONS (2)
  - RESTLESSNESS [None]
  - SLEEP DISORDER [None]
